FAERS Safety Report 6402525-6 (Version None)
Quarter: 2009Q4

REPORT INFORMATION
  Report Type: 
  Country: None (occurrence: None)
  Receive Date: 20091009
  Receipt Date: 20090930
  Transmission Date: 20100525
  Serious: Yes (Other)
  Sender: FDA-Public Use
  Company Number: ADR34502009

PATIENT
  Age: 2 Year
  Sex: Female

DRUGS (1)
  1. CIPROFLOXACIN [Suspect]
     Indication: LOWER RESPIRATORY TRACT INFECTION
     Dosage: ORAL
     Route: 048

REACTIONS (3)
  - JOINT SWELLING [None]
  - SYNOVITIS [None]
  - WEIGHT BEARING DIFFICULTY [None]
